FAERS Safety Report 9921065 (Version 1)
Quarter: 2014Q1

REPORT INFORMATION
  Report Type: Spontaneous
  Country: ES (occurrence: ES)
  Receive Date: 20140225
  Receipt Date: 20140225
  Transmission Date: 20141002
  Serious: Yes (Death)
  Sender: FDA-Public Use
  Company Number: ES-BRISTOL-MYERS SQUIBB COMPANY-20218186

PATIENT
  Sex: Female

DRUGS (1)
  1. IPILIMUMAB [Suspect]
     Dosage: 1 DF= LAST DOSE OF IPILIMUMAB (THE FOURTH DOSE)?INJ.

REACTIONS (1)
  - Death [Fatal]
